FAERS Safety Report 9358269 (Version 2)
Quarter: 2013Q2

REPORT INFORMATION
  Report Type: Report from Study
  Country: FR (occurrence: FR)
  Receive Date: 20130620
  Receipt Date: 20130628
  Transmission Date: 20140414
  Serious: Yes (Hospitalization)
  Sender: FDA-Public Use
  Company Number: FR-ROCHE-1080080

PATIENT
  Age: 71 Year
  Sex: Female
  Weight: 85 kg

DRUGS (16)
  1. TRASTUZUMAB EMTANSINE [Suspect]
     Indication: BREAST CANCER
     Dosage: LAST DOSE:306, LAST DOSE:31 MAY 2012
     Route: 042
     Dates: start: 20110620
  2. CYCLOPHOSPHAMIDE [Suspect]
     Indication: BREAST CANCER
     Dosage: DOSE:1140, LAST DOSE:26 MAY 2011
     Route: 042
     Dates: start: 20110414
  3. TRASTUZUMAB [Suspect]
     Indication: BREAST CANCER
     Dosage: DOSE:600, LAST DOSE:17 NOV 2011
     Route: 042
     Dates: start: 20110908
  4. 5-FLUOROURACIL [Suspect]
     Indication: BREAST CANCER
     Dosage: LAST DOSE:950, LAST DOSE:TAKEN:26 MAY 2011
     Route: 042
     Dates: start: 20110414
  5. EPIRUBICIN [Suspect]
     Indication: BREAST CANCER
     Dosage: DOSE:190, LAST DOSE:26 MAY 2011
     Route: 042
     Dates: start: 20110414
  6. ACETYLSALICYLIC ACID [Concomitant]
     Indication: HYPERTENSION
     Route: 065
     Dates: end: 201206
  7. METFORMIN [Concomitant]
     Indication: DIABETES MELLITUS
     Route: 065
  8. MODURETIC [Concomitant]
     Indication: HYPERTENSION
  9. DIAMICRON [Concomitant]
     Indication: DIABETES MELLITUS
  10. DIFFU K [Concomitant]
     Indication: HYPERTENSION
  11. INEXIUM [Concomitant]
     Indication: HIATUS HERNIA
  12. ACTOS [Concomitant]
     Indication: DIABETES MELLITUS
     Route: 065
     Dates: end: 201110
  13. XELEVIA [Concomitant]
     Indication: DIABETES MELLITUS
     Route: 065
     Dates: start: 201110
  14. GLICLAZIDE [Concomitant]
     Indication: DIABETES MELLITUS
     Route: 065
     Dates: start: 20120629
  15. OMEPRAZOLE [Concomitant]
     Indication: GASTROOESOPHAGEAL REFLUX DISEASE
     Route: 065
     Dates: start: 20120629
  16. ECONAZOLE [Concomitant]
     Indication: FUNGAL SKIN INFECTION
     Route: 065
     Dates: start: 20120629

REACTIONS (1)
  - Radiation pneumonitis [Recovered/Resolved]
